FAERS Safety Report 18068896 (Version 1)
Quarter: 2020Q3

REPORT INFORMATION
  Report Type: Spontaneous
  Country: PL (occurrence: PL)
  Receive Date: 20200725
  Receipt Date: 20200725
  Transmission Date: 20201103
  Serious: Yes (Hospitalization)
  Sender: FDA-Public Use
  Company Number: PL-ACCORD-192595

PATIENT
  Age: 69 Year
  Sex: Female
  Weight: 72 kg

DRUGS (5)
  1. PEMETREXED. [Suspect]
     Active Substance: PEMETREXED
     Indication: LUNG CARCINOMA CELL TYPE UNSPECIFIED STAGE 0
     Dosage: DOSE: 890, DOSE UNIT: NOT SPECIFIED
     Route: 042
     Dates: start: 20170531, end: 20170804
  2. PEMETREXED ADAMED [Suspect]
     Active Substance: PEMETREXED
     Indication: LUNG CARCINOMA CELL TYPE UNSPECIFIED STAGE 0
     Dosage: DOSE: 890, DOSE UNIT: NOT SPECIFIED
     Route: 042
     Dates: start: 20170531, end: 20170804
  3. CISPLATIN ACCORD [Suspect]
     Active Substance: CISPLATIN
     Indication: LUNG CARCINOMA CELL TYPE UNSPECIFIED STAGE 0
     Dosage: DOSE: 133, DOSE UNIT: NOT SPECIFIED
     Route: 042
     Dates: start: 20170531, end: 20170804
  4. CISPLATIN ACCORD [Suspect]
     Active Substance: CISPLATIN
     Indication: LUNG CARCINOMA CELL TYPE UNSPECIFIED STAGE 0
     Dosage: DOSE: 133, DOSE UNIT: NOT SPECIFIED
     Route: 042
     Dates: start: 20170531, end: 20170804
  5. PEMETREXED. [Suspect]
     Active Substance: PEMETREXED
     Indication: LUNG CARCINOMA CELL TYPE UNSPECIFIED STAGE 0
     Dosage: DOSE: 890, DOSE UNIT: NOT SPECIFIED
     Route: 042
     Dates: start: 20170531, end: 20170804

REACTIONS (1)
  - Anaemia [Recovering/Resolving]

NARRATIVE: CASE EVENT DATE: 20170824
